FAERS Safety Report 5788323-5 (Version None)
Quarter: 2008Q2

REPORT INFORMATION
  Report Type: 
  Country: None (occurrence: None)
  Receive Date: 20080625
  Receipt Date: 20080616
  Transmission Date: 20081010
  Serious: Yes (Hospitalization, Other)
  Sender: FDA-Public Use
  Company Number: PL-PFIZER INC-2008040580

PATIENT
  Age: 31 Year
  Sex: Female

DRUGS (25)
  1. VFEND [Suspect]
     Route: 042
     Dates: start: 20080401, end: 20080401
  2. VFEND [Suspect]
     Route: 042
     Dates: start: 20080405, end: 20080416
  3. ZYVOX [Suspect]
     Route: 042
     Dates: start: 20080406, end: 20080416
  4. TARGOCID [Concomitant]
     Route: 042
  5. LOSEC I.V. [Concomitant]
     Route: 042
  6. METOCLOPRAMIDE [Concomitant]
     Route: 042
  7. PENTOXYPHYLLINE [Concomitant]
     Route: 042
  8. ALBUTEROL [Concomitant]
  9. ACETYLCYSTEINE [Concomitant]
  10. FRAXIPARINE [Concomitant]
     Route: 058
  11. VITAMIN B1 TAB [Concomitant]
     Route: 042
  12. VITAMIN E [Concomitant]
     Route: 048
  13. MANNITOL [Concomitant]
     Route: 042
  14. PROPOFOL [Concomitant]
     Route: 042
  15. FUROSEMIDE [Concomitant]
     Route: 042
  16. FENTANYL-100 [Concomitant]
     Route: 042
  17. MIDAZOLAM HCL [Concomitant]
     Route: 042
  18. MERONEM [Concomitant]
     Route: 042
  19. DOBUTREX [Concomitant]
     Route: 042
  20. LEVONOR [Concomitant]
     Route: 042
  21. INSULIN HUMAN [Concomitant]
     Route: 042
  22. SUMAMED [Concomitant]
     Route: 042
  23. AMIKACIN [Concomitant]
     Route: 042
  24. HYDROCORTISONE [Concomitant]
     Route: 042
  25. ENAP [Concomitant]
     Route: 048

REACTIONS (1)
  - DERMATITIS EXFOLIATIVE [None]
